FAERS Safety Report 9928942 (Version 4)
Quarter: 2014Q1

REPORT INFORMATION
  Report Type: Spontaneous
  Country: JP (occurrence: None)
  Receive Date: 20140225
  Receipt Date: 20140314
  Transmission Date: 20141002
  Serious: Yes (Hospitalization, Other)
  Sender: FDA-Public Use
  Company Number: ADR-2014-00282

PATIENT
  Age: 16 Year
  Sex: Male
  Weight: 27 kg

DRUGS (1)
  1. GABALON [Suspect]
     Dates: start: 20130809

REACTIONS (7)
  - Wound dehiscence [None]
  - Device extrusion [None]
  - Postoperative wound infection [None]
  - Skin atrophy [None]
  - Implant site infection [None]
  - Malnutrition [None]
  - White blood cell count increased [None]
